FAERS Safety Report 11676653 (Version 1)
Quarter: 2015Q4

REPORT INFORMATION
  Report Type: Spontaneous
  Country: US (occurrence: US)
  Receive Date: 20151028
  Receipt Date: 20151028
  Transmission Date: 20160304
  Serious: No
  Sender: FDA-Public Use
  Company Number: US-GLAXOSMITHKLINE-US2015GSK153531

PATIENT
  Sex: Female

DRUGS (1)
  1. TANZEUM [Suspect]
     Active Substance: ALBIGLUTIDE

REACTIONS (7)
  - Back pain [Unknown]
  - Hypersensitivity [Unknown]
  - Pruritus [Unknown]
  - Influenza like illness [Unknown]
  - Insomnia [Unknown]
  - Hyperhidrosis [Unknown]
  - Palpitations [Unknown]
